FAERS Safety Report 12717308 (Version 1)
Quarter: 2016Q3

REPORT INFORMATION
  Report Type: Spontaneous
  Country: FR (occurrence: FR)
  Receive Date: 20160906
  Receipt Date: 20160906
  Transmission Date: 20161109
  Serious: Yes (Death, Other)
  Sender: FDA-Public Use
  Company Number: FR-GLAXOSMITHKLINE-FR2016GSK125855

PATIENT
  Age: 60 Year
  Sex: Female

DRUGS (28)
  1. ICLUSIG [Suspect]
     Active Substance: PONATINIB
     Indication: ACUTE LYMPHOCYTIC LEUKAEMIA
     Dosage: 45 MG, 1D
     Route: 048
     Dates: start: 20160722, end: 20160808
  2. PIPERACILLIN AND TAZOBACTAM [Suspect]
     Active Substance: PIPERACILLIN SODIUM\TAZOBACTAM SODIUM
     Indication: FEBRILE BONE MARROW APLASIA
     Dosage: UNK
     Route: 048
     Dates: start: 20160725, end: 20160804
  3. AMBISOME [Concomitant]
     Active Substance: AMPHOTERICIN B
  4. NORMACOL [Concomitant]
     Active Substance: KARAYA GUM
  5. GENTAMICINE [Concomitant]
     Active Substance: GENTAMICIN
  6. LYRICA [Concomitant]
     Active Substance: PREGABALIN
  7. MOVICOL [Concomitant]
     Active Substance: POLYETHYLENE GLYCOL 3350\POTASSIUM CHLORIDE\SODIUM BICARBONATE\SODIUM CHLORIDE
  8. NOXAFIL [Concomitant]
     Active Substance: POSACONAZOLE
  9. CEFTRIAXONE SODIUM. [Concomitant]
     Active Substance: CEFTRIAXONE SODIUM
  10. LANSOYL [Concomitant]
     Active Substance: MINERAL OIL
  11. LASILIX [Concomitant]
     Active Substance: FUROSEMIDE
  12. TRIMETHYLPHLOROGLUCINOL [Concomitant]
     Active Substance: 1,3,5-TRIMETHOXYBENZENE
  13. ZELITREX [Suspect]
     Active Substance: VALACYCLOVIR HYDROCHLORIDE
     Indication: PRODUCT USED FOR UNKNOWN INDICATION
     Dosage: 500 MG, 1D
     Route: 048
     Dates: start: 20160722, end: 20160812
  14. NERISONE [Concomitant]
     Active Substance: DIFLUCORTOLONE VALERATE
  15. DIFFU K [Concomitant]
     Active Substance: POTASSIUM CHLORIDE
  16. OROZAMUDOL [Concomitant]
     Active Substance: TRAMADOL
  17. DEBRIDAT [Concomitant]
     Active Substance: TRIMEBUTINE MALEATE
  18. PENTACARINAT [Concomitant]
     Active Substance: PENTAMIDINE ISETHIONATE
  19. MICROLAX [Concomitant]
  20. DEXAMETHASONE. [Concomitant]
     Active Substance: DEXAMETHASONE
  21. GLYCERIN. [Concomitant]
     Active Substance: GLYCERIN
  22. LOXEN [Concomitant]
     Active Substance: NICARDIPINE HYDROCHLORIDE
  23. CEFEPIME [Concomitant]
     Active Substance: CEFEPIME HYDROCHLORIDE
  24. NEFOPAM [Suspect]
     Active Substance: NEFOPAM
     Indication: ANALGESIC THERAPY
     Dosage: UNK
     Route: 042
     Dates: start: 20160725, end: 20160811
  25. EMEND [Concomitant]
     Active Substance: APREPITANT
  26. GRANOCYTE [Concomitant]
     Active Substance: LENOGRASTIM
  27. PHOCYTAN [Concomitant]
     Active Substance: .ALPHA.-GLUCOSE-1-PHOSPHATE
  28. PHOSPHONEUROS [Concomitant]
     Active Substance: CALCIUM PHOSPHATE, DIBASIC, ANHYDROUS\MAGNESIUM GLYCEROPHOSPHATE\PHOSPHORIC ACID\SODIUM PHOSPHATE, DIBASIC

REACTIONS (2)
  - Drug reaction with eosinophilia and systemic symptoms [Fatal]
  - Shock [Fatal]

NARRATIVE: CASE EVENT DATE: 20160803
